FAERS Safety Report 25866230 (Version 1)
Quarter: 2025Q3

REPORT INFORMATION
  Report Type: Spontaneous
  Country: US (occurrence: US)
  Receive Date: 20250930
  Receipt Date: 20250930
  Transmission Date: 20251021
  Serious: No
  Sender: 60 DEGREES PHARMACEUTICALS
  Company Number: US-60 DEGREES PHARMACEUTICALS, LLC-20250800002

PATIENT

DRUGS (1)
  1. ARAKODA [Suspect]
     Active Substance: TAFENOQUINE SUCCINATE
     Indication: Malaria immunisation
     Route: 065

REACTIONS (1)
  - Product odour abnormal [Unknown]
